FAERS Safety Report 17032772 (Version 1)
Quarter: 2019Q4

REPORT INFORMATION
  Report Type: Spontaneous
  Country: GB (occurrence: GB)
  Receive Date: 20191114
  Receipt Date: 20191114
  Transmission Date: 20200122
  Serious: Yes (Other)
  Sender: FDA-Public Use
  Company Number: GB-JNJFOC-20191113980

PATIENT
  Age: 63 Year
  Sex: Male
  Weight: 106 kg

DRUGS (1)
  1. SIMPONI [Suspect]
     Active Substance: GOLIMUMAB
     Indication: PRODUCT USED FOR UNKNOWN INDICATION
     Route: 058

REACTIONS (2)
  - Colitis ulcerative [Unknown]
  - Dermatitis psoriasiform [Unknown]

NARRATIVE: CASE EVENT DATE: 201606
